FAERS Safety Report 9587757 (Version 1)
Quarter: 2013Q4

REPORT INFORMATION
  Report Type: Spontaneous
  Country: FR (occurrence: FR)
  Receive Date: 20131003
  Receipt Date: 20131003
  Transmission Date: 20140711
  Serious: Yes (Other)
  Sender: FDA-Public Use
  Company Number: FR-BAUSCH-BL-2013-005205

PATIENT
  Sex: Male

DRUGS (7)
  1. CARTEOL LP 2% COLLYRE A LIBERATION PROLONGEE [Suspect]
     Indication: GLAUCOMA
     Route: 047
     Dates: start: 20050307, end: 20081117
  2. CARTEOL [Suspect]
     Indication: GLAUCOMA
     Route: 047
     Dates: start: 20100622, end: 20120319
  3. XALACOM [Suspect]
     Indication: GLAUCOMA
     Route: 047
     Dates: start: 20081118, end: 20091130
  4. TRUSOPT [Suspect]
     Indication: GLAUCOMA
     Route: 047
     Dates: start: 20091201, end: 20100621
  5. TRUSOPT [Suspect]
     Route: 047
     Dates: start: 20130625
  6. XALATAN [Suspect]
     Indication: GLAUCOMA
     Route: 047
     Dates: start: 20091201
  7. XALATAN [Suspect]

REACTIONS (1)
  - Raynaud^s phenomenon [Not Recovered/Not Resolved]
